FAERS Safety Report 24108832 (Version 1)
Quarter: 2024Q3

REPORT INFORMATION
  Report Type: Spontaneous
  Country: JP (occurrence: JP)
  Receive Date: 20240718
  Receipt Date: 20240718
  Transmission Date: 20241016
  Serious: Yes (Hospitalization, Other)
  Sender: AJANTA PHARMA
  Company Number: JP-AJANTA-2024AJA00128

PATIENT
  Age: 71 Year
  Sex: Female

DRUGS (3)
  1. TOFACITINIB [Suspect]
     Active Substance: TOFACITINIB
     Indication: Rheumatoid arthritis
  2. METHOTREXATE [Suspect]
     Active Substance: METHOTREXATE
     Indication: Rheumatoid arthritis
  3. Pednisolone [Concomitant]
     Indication: Rheumatoid arthritis

REACTIONS (1)
  - Lymphoproliferative disorder [Recovered/Resolved]
